FAERS Safety Report 8623324-0 (Version None)
Quarter: 2012Q3

REPORT INFORMATION
  Report Type: 
  Country: None (occurrence: None)
  Receive Date: 20120824
  Receipt Date: 20120824
  Transmission Date: 20120928
  Serious: No
  Sender: FDA-Public Use
  Company Number: None

PATIENT
  Age: 63 Year
  Sex: Female
  Weight: 58.9676 kg

DRUGS (1)
  1. RECLAST [Suspect]
     Dosage: YEARLY IV INFUSION
     Route: 042
     Dates: start: 20120719

REACTIONS (6)
  - EYE PAIN [None]
  - EXOPHTHALMOS [None]
  - DIPLOPIA [None]
  - CONJUNCTIVITIS [None]
  - OCULAR HYPERAEMIA [None]
  - PAROPHTHALMIA [None]
